FAERS Safety Report 13079268 (Version 2)
Quarter: 2017Q1

REPORT INFORMATION
  Report Type: Spontaneous
  Country: DE (occurrence: DE)
  Receive Date: 20170103
  Receipt Date: 20170203
  Transmission Date: 20170428
  Serious: Yes (Other)
  Sender: FDA-Public Use
  Company Number: ALCN2016DE009725

PATIENT
  Sex: Female

DRUGS (3)
  1. JETREA [Suspect]
     Active Substance: OCRIPLASMIN
     Indication: MACULAR HOLE
     Dosage: 1 DF, ONCE/SINGLE
     Route: 031
     Dates: start: 20160718, end: 20160718
  2. NEVANAC [Suspect]
     Active Substance: NEPAFENAC
     Indication: MACULAR HOLE
     Dosage: 3 GTT, QD
     Route: 047
     Dates: start: 20160712, end: 20161208
  3. HYLO-VISION [Concomitant]
     Active Substance: HYALURONATE SODIUM
     Indication: PRODUCT USED FOR UNKNOWN INDICATION
     Dosage: 4 DF, QD
     Route: 047
     Dates: start: 20160719, end: 20160724

REACTIONS (4)
  - Scleral cyst [Not Recovered/Not Resolved]
  - Photopsia [Unknown]
  - Eye oedema [Not Recovered/Not Resolved]
  - Vitreous floaters [Unknown]

NARRATIVE: CASE EVENT DATE: 20160823
